FAERS Safety Report 19808691 (Version 2)
Quarter: 2021Q3

REPORT INFORMATION
  Report Type: Report from Study
  Country: US (occurrence: US)
  Receive Date: 20210909
  Receipt Date: 20210913
  Transmission Date: 20211014
  Serious: Yes (Life-Threatening, Hospitalization, Other)
  Sender: FDA-Public Use
  Company Number: US-BRISTOL-MYERS SQUIBB COMPANY-BMS-2021-086754

PATIENT
  Age: 43 Year
  Sex: Female
  Weight: 66.2 kg

DRUGS (29)
  1. XANAX [Concomitant]
     Active Substance: ALPRAZOLAM
     Indication: ANXIETY
     Dosage: TAKE 1 TABLET (0.5 MG TOTAL) BY MOUTH DAILY AS NEEDED
     Route: 048
  2. VITAMIN D3 [Concomitant]
     Active Substance: CHOLECALCIFEROL
     Indication: PRODUCT USED FOR UNKNOWN INDICATION
     Dosage: 3,000 UNIT TABS, TAKE 2,000 UNITS BY MOUTH DAILY
     Route: 048
  3. NEURONTIN [Concomitant]
     Active Substance: GABAPENTIN
     Indication: PAIN
     Dosage: TAKE 3 CAPSULES (900 MG TOTAL) BY MOUTH 3 TIMES A DAY
     Route: 048
  4. XARELTO [Concomitant]
     Active Substance: RIVAROXABAN
     Dosage: 20 MG TABLET, TAKE 1 TABLET (20 MG TOTAL) BY MOUTH DAILY WITH DINNER
     Route: 048
  5. SYNTHROID [Concomitant]
     Active Substance: LEVOTHYROXINE SODIUM
     Indication: HYPOTHYROIDISM
     Dosage: TAKE 1 TABLET (75 MCG TOTAL) BY MOUTH EVERY MORNING BEFORE BREAKFAST
     Route: 048
  6. NARCAN [Concomitant]
     Active Substance: NALOXONE HYDROCHLORIDE
     Indication: PRODUCT USED FOR UNKNOWN INDICATION
     Dosage: 4 MG/ACTUATION SPRY, SPRAY 1 SPRAY INTO THE NOSTRIL
     Route: 065
     Dates: end: 20210510
  7. SYNTHROID [Concomitant]
     Active Substance: LEVOTHYROXINE SODIUM
     Indication: THYROIDITIS
  8. VALTREX [Concomitant]
     Active Substance: VALACYCLOVIR HYDROCHLORIDE
     Indication: PROPHYLAXIS
     Dosage: TAKE 500 MG BY MOUTH 2 TIMES A DAY
     Route: 048
  9. DECADRON [Concomitant]
     Active Substance: DEXAMETHASONE
     Indication: PRODUCT USED FOR UNKNOWN INDICATION
     Route: 065
  10. OMEGA 3 FLAX SEED OIL [Concomitant]
     Indication: PRODUCT USED FOR UNKNOWN INDICATION
     Route: 048
  11. L?GLUTAMINE [GLUTAMIC ACID] [Concomitant]
     Active Substance: GLUTAMIC ACID
     Indication: PRODUCT USED FOR UNKNOWN INDICATION
     Route: 048
  12. EMLA [Concomitant]
     Active Substance: LIDOCAINE\PRILOCAINE
     Indication: PRODUCT USED FOR UNKNOWN INDICATION
     Dosage: 2.5?2.5 PERCENT CREAM, APPLY TO PORT 1 HOUR PRIOR TO ACCESS
     Route: 065
  13. MAGNESIUM [Concomitant]
     Active Substance: MAGNESIUM
     Indication: PRODUCT USED FOR UNKNOWN INDICATION
     Route: 048
  14. ONDANSETRON [Concomitant]
     Active Substance: ONDANSETRON
     Indication: PRODUCT USED FOR UNKNOWN INDICATION
     Route: 065
  15. PEPCID [Concomitant]
     Active Substance: FAMOTIDINE
     Indication: PRODUCT USED FOR UNKNOWN INDICATION
     Dosage: TAKE 20 MG BY MOUTH 2 TIMES A DAY
     Route: 048
  16. MOTRIN [Concomitant]
     Active Substance: IBUPROFEN
     Indication: PRODUCT USED FOR UNKNOWN INDICATION
     Dosage: TAKE 1 TAB (600 MG TOTAL) BY MOUTH EVERY 6 HOURS AS NEEDED ONCE ? 2XS DAILY TO AVOID SO MUCH HYDROCO
     Route: 048
  17. ROXICODONE [Concomitant]
     Active Substance: OXYCODONE HYDROCHLORIDE
     Indication: PAIN
     Dosage: TAKE 1 TABLET (5 MG TOTAL) BY MOUTH EVERY 4 HOURS AS NEEDED
     Route: 048
  18. SENOKOT [Concomitant]
     Active Substance: SENNOSIDES
     Indication: CONSTIPATION
     Dosage: TAKE 17.2 MG BY MOUTH DAILY AS NEEDED
     Route: 048
  19. ELIQUIS [Concomitant]
     Active Substance: APIXABAN
     Indication: THROMBOSIS
     Dosage: UNK
     Route: 065
     Dates: start: 20210823, end: 20210827
  20. XANAX [Concomitant]
     Active Substance: ALPRAZOLAM
     Indication: INSOMNIA
     Dosage: 2.5 MG
     Route: 065
  21. NEURONTIN [Concomitant]
     Active Substance: GABAPENTIN
     Dosage: 600MG QAM, QNOON; 900MG QEVENING
  22. ROXICODONE [Concomitant]
     Active Substance: OXYCODONE HYDROCHLORIDE
     Dosage: 5MG QHS PRN
     Route: 065
  23. XARELTO [Concomitant]
     Active Substance: RIVAROXABAN
     Indication: PRODUCT USED FOR UNKNOWN INDICATION
     Dosage: 15 MG TABLET, TAKE 1 TABLET (15 MG TOTAL) BY MOUTH 2 TIMES A DAY WITH MEALS X 21 DAYS. FOLLOWED BY 2
     Route: 048
  24. XARELTO [Concomitant]
     Active Substance: RIVAROXABAN
     Indication: THROMBOSIS
     Dosage: 10 MILLIGRAM, BID
     Route: 065
     Dates: start: 20210827
  25. AMBIEN [Concomitant]
     Active Substance: ZOLPIDEM TARTRATE
     Indication: INSOMNIA
     Dosage: 7.5MG QHS
     Route: 065
     Dates: start: 20210901
  26. IPILIMUMAB [Suspect]
     Active Substance: IPILIMUMAB
     Indication: SARCOMA
     Dosage: 1MG/KG (68.3MG), Q3WK
     Route: 042
     Dates: start: 20201215, end: 20210830
  27. NIVOLUMAB [Suspect]
     Active Substance: NIVOLUMAB
     Indication: SARCOMA
     Dosage: 3 MILLIGRAM/KILOGRAM, Q3WK
     Route: 042
     Dates: start: 20201215, end: 20210830
  28. LIDOCAINE. [Concomitant]
     Active Substance: LIDOCAINE
     Indication: PRODUCT USED FOR UNKNOWN INDICATION
     Dosage: 2PERCENT VISCOUS 2PERCENT SOLUTION, TAKE 10 ML BY MOUTH 3 TIMES A DAY AS NEEDED
     Route: 048
  29. COMPAZINE [Concomitant]
     Active Substance: PROCHLORPERAZINE MALEATE
     Indication: PRODUCT USED FOR UNKNOWN INDICATION
     Route: 065

REACTIONS (1)
  - Primary adrenal insufficiency [Recovered/Resolved]

NARRATIVE: CASE EVENT DATE: 20210830
